FAERS Safety Report 20722476 (Version 1)
Quarter: 2022Q2

REPORT INFORMATION
  Report Type: Spontaneous
  Country: CO (occurrence: CO)
  Receive Date: 20220418
  Receipt Date: 20220418
  Transmission Date: 20220720
  Serious: Yes (Other)
  Sender: FDA-Public Use
  Company Number: CO-JNJFOC-20220420528

PATIENT
  Age: 15 Year
  Sex: Male
  Weight: 57 kg

DRUGS (5)
  1. RISPERDAL [Suspect]
     Active Substance: RISPERIDONE
     Indication: Autism spectrum disorder
     Route: 048
  2. RISPERDAL CONSTA [Suspect]
     Active Substance: RISPERIDONE
     Indication: Autism spectrum disorder
     Route: 048
  3. RISPERDAL CONSTA [Suspect]
     Active Substance: RISPERIDONE
  4. RISPERDAL CONSTA [Suspect]
     Active Substance: RISPERIDONE
  5. RISPERDAL CONSTA [Suspect]
     Active Substance: RISPERIDONE

REACTIONS (11)
  - Hallucination [Unknown]
  - Euphoric mood [Unknown]
  - Aggression [Unknown]
  - Insomnia [Unknown]
  - Anxiety [Unknown]
  - Incorrect product dosage form administered [Unknown]
  - Product use in unapproved indication [Unknown]
  - Product use issue [Unknown]
  - Product administered to patient of inappropriate age [Unknown]
  - Off label use [Unknown]
  - Treatment noncompliance [Unknown]

NARRATIVE: CASE EVENT DATE: 20210901
